FAERS Safety Report 6760831-X (Version None)
Quarter: 2010Q2

REPORT INFORMATION
  Report Type: 
  Country: None (occurrence: None)
  Receive Date: 20100607
  Receipt Date: 20100607
  Transmission Date: 20101027
  Serious: Yes (Other)
  Sender: FDA-Public Use
  Company Number: None

PATIENT
  Age: 36 Year
  Sex: Female
  Weight: 77.1115 kg

DRUGS (1)
  1. MIRENA [Suspect]
     Indication: CONTRACEPTION
     Dosage: VAGINAL INSERTION
     Dates: start: 20090214, end: 20100605

REACTIONS (3)
  - AFFECTIVE DISORDER [None]
  - DRUG INEFFECTIVE [None]
  - MOOD SWINGS [None]
